FAERS Safety Report 18334034 (Version 1)
Quarter: 2020Q3

REPORT INFORMATION
  Report Type: Spontaneous
  Country: US (occurrence: US)
  Receive Date: 20200930
  Receipt Date: 20200930
  Transmission Date: 20201103
  Serious: Yes (Hospitalization)
  Sender: FDA-Public Use
  Company Number: None

PATIENT
  Sex: Female
  Weight: 64.2 kg

DRUGS (1)
  1. CYTARABINE. [Suspect]
     Active Substance: CYTARABINE
     Dates: end: 20200912

REACTIONS (7)
  - Diarrhoea [None]
  - Vomiting [None]
  - Blood culture positive [None]
  - Pyrexia [None]
  - Asthenia [None]
  - Pseudomonas test positive [None]
  - Tachycardia [None]

NARRATIVE: CASE EVENT DATE: 20200920
